FAERS Safety Report 6097002-9 (Version None)
Quarter: 2009Q1

REPORT INFORMATION
  Report Type: 
  Country: None (occurrence: None)
  Receive Date: 20090227
  Receipt Date: 20090217
  Transmission Date: 20090719
  Serious: Yes (Hospitalization, Other)
  Sender: FDA-Public Use
  Company Number: PHHY2009MX04673

PATIENT
  Sex: Female

DRUGS (1)
  1. DIOVAN HCT [Suspect]
     Dosage: 160/25 MG PER DAY
     Route: 048

REACTIONS (5)
  - BREAST HAEMATOMA [None]
  - BREAST OPERATION [None]
  - HYPERTHERMIA [None]
  - MAMMOGRAM ABNORMAL [None]
  - PAIN [None]
